FAERS Safety Report 4287747-5 (Version None)
Quarter: 2004Q1

REPORT INFORMATION
  Report Type: 
  Country: None (occurrence: None)
  Receive Date: 20040205
  Receipt Date: 20040116
  Transmission Date: 20041129
  Serious: Yes (Death)
  Sender: FDA-Public Use
  Company Number: US_031199068

PATIENT
  Age: 21 Year
  Sex: Female
  Weight: 84 kg

DRUGS (5)
  1. ZYPREXA [Suspect]
     Indication: PSYCHOTIC DISORDER
     Dosage: 15 MG/DAY
     Dates: start: 20010901, end: 20011123
  2. SERUQUEL (QUETIAPINE FUMARATE) [Concomitant]
  3. ATIVAN [Concomitant]
  4. VISTARIL [Concomitant]
  5. DEPO-PROVERA SUSPENSION/INJ [Concomitant]

REACTIONS (1)
  - REFUSAL OF TREATMENT BY PATIENT [None]
